FAERS Safety Report 4716734-5 (Version None)
Quarter: 2005Q3

REPORT INFORMATION
  Report Type: 
  Country: None (occurrence: None)
  Receive Date: 20050719
  Receipt Date: 20041122
  Transmission Date: 20060218
  Serious: Yes (Hospitalization, Other)
  Sender: FDA-Public Use
  Company Number: US-NOVOPROD-240679

PATIENT
  Sex: Female
  Weight: 50 kg

DRUGS (5)
  1. NOVOSEVEN [Suspect]
     Indication: FACTOR VIII INHIBITION
     Dosage: 90 UG/KG, TWICE
     Route: 042
     Dates: start: 20041027, end: 20041027
  2. NOVOSEVEN [Suspect]
     Dosage: EVERY TWO HOURS PRIOR TO SURGERY
     Route: 042
  3. FEIBA [Suspect]
     Indication: FACTOR VIII INHIBITION
     Dosage: 75 U / KG, TID
     Route: 042
     Dates: start: 20041027
  4. FEIBA [Suspect]
     Dosage: 75 U / KG, BID
     Route: 042
  5. STEROIDS NOS [Concomitant]
     Indication: ILL-DEFINED DISORDER
     Route: 042

REACTIONS (2)
  - DEEP VEIN THROMBOSIS [None]
  - THERAPEUTIC RESPONSE DECREASED [None]
